FAERS Safety Report 8141777-1 (Version None)
Quarter: 2012Q1

REPORT INFORMATION
  Report Type: 
  Country: None (occurrence: None)
  Receive Date: 20120216
  Receipt Date: 20120214
  Transmission Date: 20120608
  Serious: No
  Sender: FDA-Public Use
  Company Number: US-PFIZER INC-2012040679

PATIENT
  Sex: Female

DRUGS (3)
  1. ZOLOFT [Concomitant]
     Indication: GENERALISED ANXIETY DISORDER
     Dosage: 75 MG, DAILY
  2. GEODON [Suspect]
     Indication: BIPOLAR DISORDER
     Dosage: 40 MG, DAILY
     Dates: start: 20111005, end: 20110101
  3. GEODON [Suspect]
     Dosage: 20 MG, DAILY
     Dates: start: 20110101, end: 20120119

REACTIONS (4)
  - NAUSEA [None]
  - THIRST [None]
  - BLOOD GLUCOSE INCREASED [None]
  - POLLAKIURIA [None]
